FAERS Safety Report 10203414 (Version 2)
Quarter: 2014Q2

REPORT INFORMATION
  Report Type: Spontaneous
  Country: US (occurrence: US)
  Receive Date: 20140529
  Receipt Date: 20140604
  Transmission Date: 20141212
  Serious: Yes (Hospitalization, Other)
  Sender: FDA-Public Use
  Company Number: US-RB-066195-14

PATIENT
  Age: 81 Year
  Sex: Female

DRUGS (2)
  1. DELSYM ADULT ORANGE [Suspect]
     Indication: NASOPHARYNGITIS
     Dosage: PATIENT TOOK ONLY ONE DOSE OF THE PRODUCT ON 20-MAY-2014
     Route: 048
     Dates: start: 20140520
  2. WELLBUTRIN [Suspect]
     Indication: PRODUCT USED FOR UNKNOWN INDICATION

REACTIONS (5)
  - Atrial fibrillation [Recovered/Resolved]
  - Dehydration [Recovered/Resolved]
  - Aphagia [Recovered/Resolved]
  - Unresponsive to stimuli [Recovered/Resolved]
  - Dizziness [Recovered/Resolved]
